FAERS Safety Report 7468026-1 (Version None)
Quarter: 2011Q2

REPORT INFORMATION
  Report Type: 
  Country: None (occurrence: None)
  Receive Date: 20110509
  Receipt Date: 20110303
  Transmission Date: 20111010
  Serious: No
  Sender: FDA-Public Use
  Company Number: US-ALEXION-A201100291

PATIENT
  Sex: Male

DRUGS (1)
  1. SOLIRIS [Suspect]

REACTIONS (3)
  - HAEMOGLOBIN ABNORMAL [None]
  - HAND FRACTURE [None]
  - RETICULOCYTE COUNT INCREASED [None]
